FAERS Safety Report 16006247 (Version 5)
Quarter: 2021Q4

REPORT INFORMATION
  Report Type: Report from Study
  Country: CA (occurrence: CA)
  Receive Date: 20190226
  Receipt Date: 20211101
  Transmission Date: 20220303
  Serious: Yes (Death, Hospitalization, Other)
  Sender: FDA-Public Use
  Company Number: CA-002147023-PHHY2017CA156438

PATIENT

DRUGS (6)
  1. RUXOLITINIB [Suspect]
     Active Substance: RUXOLITINIB
     Indication: Myelofibrosis
     Dosage: 15 MG, BID
     Route: 048
     Dates: start: 20170918
  2. RUXOLITINIB [Suspect]
     Active Substance: RUXOLITINIB
     Dosage: 15 MG, BID
     Route: 048
     Dates: start: 20180918
  3. RUXOLITINIB [Suspect]
     Active Substance: RUXOLITINIB
     Dosage: 15 MG, BID
     Route: 048
     Dates: start: 20190207
  4. RUXOLITINIB [Suspect]
     Active Substance: RUXOLITINIB
     Dosage: 15 MG, BID
     Route: 048
     Dates: start: 20190401
  5. RUXOLITINIB [Suspect]
     Active Substance: RUXOLITINIB
     Dosage: 10 MG, BID
     Route: 048
  6. NORVASC [Concomitant]
     Active Substance: AMLODIPINE BESYLATE
     Indication: Product used for unknown indication
     Dosage: UNK
     Route: 065

REACTIONS (14)
  - Oedema peripheral [Recovering/Resolving]
  - Contusion [Unknown]
  - Death [Fatal]
  - Product use complaint [Unknown]
  - Haemoglobin decreased [Unknown]
  - Muscle spasms [Unknown]
  - Renal pain [Unknown]
  - Back pain [Unknown]
  - Platelet count increased [Unknown]
  - Pneumonia influenzal [Unknown]
  - Renal disorder [Unknown]
  - Renal failure [Unknown]
  - Dyspnoea [Unknown]
  - Localised infection [Recovered/Resolved]

NARRATIVE: CASE EVENT DATE: 20190101
